FAERS Safety Report 6588134-7 (Version None)
Quarter: 2010Q1

REPORT INFORMATION
  Report Type: 
  Country: None (occurrence: None)
  Receive Date: 20100212
  Receipt Date: 20100126
  Transmission Date: 20100710
  Serious: Yes (Death)
  Sender: FDA-Public Use
  Company Number: 1000011557

PATIENT
  Age: 70 Year
  Sex: Female

DRUGS (3)
  1. MEMANTINE HCL [Suspect]
     Indication: DEMENTIA ALZHEIMER'S TYPE
     Dosage: 20 MG (20 MG, ONCE DAILY AFTER BREAKFAST), ORAL
     Route: 048
     Dates: start: 20060704
  2. DONEPEZIL HYDROCHLORIDE [Concomitant]
  3. TPN [Concomitant]

REACTIONS (1)
  - PNEUMONIA [None]
